FAERS Safety Report 6298786-7 (Version None)
Quarter: 2009Q3

REPORT INFORMATION
  Report Type: 
  Country: None (occurrence: None)
  Receive Date: 20090806
  Receipt Date: 20090721
  Transmission Date: 20100115
  Serious: Yes (Hospitalization)
  Sender: FDA-Public Use
  Company Number: US-DENTSPLY-2009-0058-EUR

PATIENT
  Age: 47 Year
  Sex: Male

DRUGS (2)
  1. ORAQIX [Suspect]
     Route: 061
     Dates: start: 20090216, end: 20090216
  2. LIDOCAINE/TETRACAINE/PRILOCAINE [Suspect]
     Route: 061
     Dates: start: 20090216, end: 20090216

REACTIONS (3)
  - ANAPHYLACTIC SHOCK [None]
  - PHARYNGEAL OEDEMA [None]
  - SWOLLEN TONGUE [None]
